FAERS Safety Report 19143292 (Version 1)
Quarter: 2021Q2

REPORT INFORMATION
  Report Type: Spontaneous
  Country: CN (occurrence: CN)
  Receive Date: 20210416
  Receipt Date: 20210416
  Transmission Date: 20210717
  Serious: Yes (Life-Threatening, Hospitalization, Other)
  Sender: FDA-Public Use
  Company Number: CN-GRANULES-CN-2021GRALIT00241

PATIENT
  Age: 23 Year
  Sex: Female

DRUGS (8)
  1. CEFOTAXIME SODIUM [Interacting]
     Active Substance: CEFOTAXIME SODIUM
     Route: 065
  2. CEFOPERAZONE;SULBACTAM SODIUM [Interacting]
     Active Substance: CEFOPERAZONE\SULBACTAM SODIUM
     Indication: CANDIDA INFECTION
  3. IMIPENEM [Interacting]
     Active Substance: IMIPENEM
     Route: 065
  4. COLCHICINE. [Suspect]
     Active Substance: COLCHICINE
     Indication: PRODUCT USED FOR UNKNOWN INDICATION
     Dosage: 100 TABLETS OF COLCHICINE (DRUG OVERDOSE; 0.5MG PER TABLET)
     Route: 048
  5. CEFOPERAZONE;SULBACTAM SODIUM [Interacting]
     Active Substance: CEFOPERAZONE\SULBACTAM SODIUM
     Indication: PSEUDOMONAS INFECTION
     Route: 065
  6. CILASTATIN SODIUM [Interacting]
     Active Substance: CILASTATIN SODIUM
     Route: 065
  7. CEFOPERAZONE;SULBACTAM [Interacting]
     Active Substance: CEFOPERAZONE\SULBACTAM
     Indication: CANDIDA INFECTION
  8. CEFOPERAZONE;SULBACTAM [Interacting]
     Active Substance: CEFOPERAZONE\SULBACTAM
     Indication: PSEUDOMONAS INFECTION
     Route: 065

REACTIONS (13)
  - Pseudomonas infection [Recovered/Resolved]
  - Cardiac dysfunction [Recovered/Resolved]
  - Atelectasis [Recovered/Resolved]
  - Multiple organ dysfunction syndrome [Recovered/Resolved]
  - Overdose [Unknown]
  - Candida infection [Recovered/Resolved]
  - Hypoxia [Recovered/Resolved]
  - Toxicity to various agents [Unknown]
  - Myelosuppression [Recovered/Resolved]
  - Ileus paralytic [Recovered/Resolved]
  - Rhabdomyolysis [Recovered/Resolved]
  - Pancreatitis acute [Recovered/Resolved]
  - Metabolic acidosis [Recovered/Resolved]
